FAERS Safety Report 5281515-3 (Version None)
Quarter: 2007Q1

REPORT INFORMATION
  Report Type: 
  Country: None (occurrence: None)
  Receive Date: 20070330
  Receipt Date: 20070319
  Transmission Date: 20070707
  Serious: Yes (Life-Threatening)
  Sender: FDA-Public Use
  Company Number: FR-AMGEN-UK215698

PATIENT
  Age: 13 Year
  Sex: Female

DRUGS (2)
  1. KEPIVANCE [Suspect]
     Indication: MUCOSAL INFLAMMATION
     Route: 042
     Dates: start: 20060414, end: 20060610
  2. DOXORUBICIN HCL [Suspect]
     Route: 042
     Dates: start: 20051130, end: 20061123

REACTIONS (2)
  - CARDIAC FAILURE [None]
  - HEPATIC FAILURE [None]
